FAERS Safety Report 16069892 (Version 1)
Quarter: 2019Q1

REPORT INFORMATION
  Report Type: Report from Study
  Country: None (occurrence: DE)
  Receive Date: 20190314
  Receipt Date: 20190314
  Transmission Date: 20190418
  Serious: Yes (Death, Hospitalization)
  Sender: FDA-Public Use
  Company Number: DE-ABBVIE-19S-062-2701150-00

PATIENT
  Sex: Male

DRUGS (1)
  1. DUODOPA [Suspect]
     Active Substance: CARBIDOPA\LEVODOPA
     Indication: PARKINSON^S DISEASE
     Dosage: MD 8.0ML; CRD 3.5ML/HR; ED 1.5ML
     Route: 050
     Dates: start: 20180824

REACTIONS (3)
  - Decubitus ulcer [Not Recovered/Not Resolved]
  - Device occlusion [Recovered/Resolved]
  - Pneumonia [Fatal]
